FAERS Safety Report 5246563-8 (Version None)
Quarter: 2007Q1

REPORT INFORMATION
  Report Type: 
  Country: None (occurrence: None)
  Receive Date: 20070226
  Receipt Date: 20070214
  Transmission Date: 20070707
  Serious: Yes (Hospitalization)
  Sender: FDA-Public Use
  Company Number: FR-AVENTIS-200710553FR

PATIENT
  Age: 43 Year
  Sex: Female
  Weight: 58 kg

DRUGS (6)
  1. CLAFORAN [Suspect]
     Route: 042
     Dates: start: 20070123, end: 20070124
  2. CLAMOXYL                           /00249601/ [Suspect]
     Route: 042
     Dates: start: 20070123, end: 20070124
  3. BACTRIM [Concomitant]
     Route: 048
     Dates: start: 20070106, end: 20070125
  4. KALETRA [Concomitant]
     Route: 048
     Dates: start: 20070106, end: 20070125
  5. COMBIVIR [Concomitant]
  6. METHADONE HCL [Concomitant]

REACTIONS (3)
  - HYPOTENSION [None]
  - PYREXIA [None]
  - RASH [None]
